FAERS Safety Report 10077070 (Version 1)
Quarter: 2014Q2

REPORT INFORMATION
  Report Type: Spontaneous
  Country: GB (occurrence: None)
  Receive Date: 20140410
  Receipt Date: 20140410
  Transmission Date: 20141212
  Serious: Yes (Other)
  Sender: FDA-Public Use
  Company Number: AUR-APL-2014-04086

PATIENT
  Age: 53 Year
  Sex: Female
  Weight: 69 kg

DRUGS (3)
  1. NAPROXEN (NAPROXEN) [Suspect]
     Indication: PAIN
     Dosage: 1000 MG (500 MG, 2 IN 1 D), ORAL
     Route: 048
  2. CITALOPRAM (CITALOPRAM) [Concomitant]
  3. CO-CODAMOL (PANADEINE CO) [Concomitant]

REACTIONS (1)
  - Aphthous stomatitis [None]
